FAERS Safety Report 19375269 (Version 1)
Quarter: 2021Q2

REPORT INFORMATION
  Report Type: Spontaneous
  Country: AR (occurrence: AR)
  Receive Date: 20210604
  Receipt Date: 20210604
  Transmission Date: 20210717
  Serious: Yes (Death)
  Sender: FDA-Public Use
  Company Number: AR-PFIZER INC-2021618713

PATIENT
  Age: 69 Year
  Sex: Male

DRUGS (1)
  1. BOSULIF [Suspect]
     Active Substance: BOSUTINIB MONOHYDRATE
     Dosage: UNK
     Dates: start: 20210510

REACTIONS (3)
  - Cardio-respiratory arrest [Fatal]
  - Weight decreased [Unknown]
  - Dehydration [Unknown]

NARRATIVE: CASE EVENT DATE: 202105
